FAERS Safety Report 13989043 (Version 1)
Quarter: 2017Q3

REPORT INFORMATION
  Report Type: Spontaneous
  Country: FR (occurrence: FR)
  Receive Date: 20170919
  Receipt Date: 20170919
  Transmission Date: 20171128
  Serious: Yes (Hospitalization, Other)
  Sender: FDA-Public Use
  Company Number: FR-SUN PHARMACEUTICAL INDUSTRIES LTD-2016US-111104

PATIENT
  Age: 47 Year
  Sex: Female

DRUGS (4)
  1. BROMAZEPAM [Concomitant]
     Active Substance: BROMAZEPAM
     Indication: DRUG WITHDRAWAL SYNDROME
     Dosage: UNK
     Route: 065
  2. BUPRENORPHINE. [Suspect]
     Active Substance: BUPRENORPHINE
     Indication: DRUG USE DISORDER
     Dosage: 8 MG, DAILY
     Route: 065
  3. NALMEFENE [Interacting]
     Active Substance: NALMEFENE
     Indication: PRODUCT USED FOR UNKNOWN INDICATION
     Dosage: 18 MG, SINGLE
     Route: 048
  4. ALCOHOL. [Concomitant]
     Active Substance: ALCOHOL
     Indication: DRUG WITHDRAWAL SYNDROME
     Dosage: UNK
     Route: 065

REACTIONS (3)
  - Drug prescribing error [Unknown]
  - Drug withdrawal syndrome [Recovering/Resolving]
  - Drug interaction [Unknown]
